FAERS Safety Report 6099375-X (Version None)
Quarter: 2009Q1

REPORT INFORMATION
  Report Type: 
  Country: None (occurrence: None)
  Receive Date: 20090303
  Receipt Date: 20090218
  Transmission Date: 20090719
  Serious: Yes (Disabling)
  Sender: FDA-Public Use
  Company Number: AU-PFIZER INC-2009165333

PATIENT

DRUGS (1)
  1. XANAX [Suspect]
     Indication: VESTIBULAR DISORDER
     Dosage: .25 MG, 3X/DAY
     Route: 048
     Dates: start: 20080602

REACTIONS (2)
  - DYSGEUSIA [None]
  - PAROSMIA [None]
